FAERS Safety Report 15379074 (Version 3)
Quarter: 2018Q4

REPORT INFORMATION
  Report Type: Spontaneous
  Country: US (occurrence: US)
  Receive Date: 20180913
  Receipt Date: 20181026
  Transmission Date: 20190204
  Serious: Yes (Other)
  Sender: FDA-Public Use
  Company Number: US-BAYER-2018-170036

PATIENT
  Age: 45 Year
  Sex: Female
  Weight: 81.18 kg

DRUGS (2)
  1. IBUPROFEN. [Concomitant]
     Active Substance: IBUPROFEN
     Route: 048
  2. MIRENA [Suspect]
     Active Substance: LEVONORGESTREL
     Indication: CONTRACEPTION
     Dosage: 20 MCG/24HR, CONT
     Route: 015
     Dates: start: 20130801

REACTIONS (6)
  - Complication of device removal [Unknown]
  - Device use error [Unknown]
  - Device dislocation [None]
  - Genital haemorrhage [None]
  - Pain [None]
  - Device difficult to use [None]

NARRATIVE: CASE EVENT DATE: 2013
